FAERS Safety Report 23129276 (Version 2)
Quarter: 2024Q2

REPORT INFORMATION
  Report Type: Report from Study
  Country: US (occurrence: US)
  Receive Date: 20231031
  Receipt Date: 20240506
  Transmission Date: 20240716
  Serious: No
  Sender: FDA-Public Use
  Company Number: US-002147023-NVSC2023US232844

PATIENT
  Sex: Female

DRUGS (1)
  1. PIQRAY [Suspect]
     Active Substance: ALPELISIB
     Indication: Breast cancer metastatic
     Dosage: UNK
     Route: 065

REACTIONS (5)
  - Hyperglycaemia [Unknown]
  - Nausea [Unknown]
  - Diarrhoea [Unknown]
  - Stomatitis [Unknown]
  - Glycosylated haemoglobin increased [Unknown]
